FAERS Safety Report 9830409 (Version 2)
Quarter: 2014Q1

REPORT INFORMATION
  Report Type: Spontaneous
  Country: IT (occurrence: IT)
  Receive Date: 20140120
  Receipt Date: 20140217
  Transmission Date: 20141002
  Serious: Yes (Other)
  Sender: FDA-Public Use
  Company Number: IT-JNJFOC-20140105040

PATIENT
  Age: 72 Year
  Sex: Female
  Weight: 70 kg

DRUGS (7)
  1. HALDOL [Suspect]
     Indication: DEPRESSION
     Route: 048
     Dates: start: 20130101, end: 20131217
  2. HALDOL [Suspect]
     Indication: DEPRESSION
     Route: 048
  3. ENTUMIN [Suspect]
     Indication: DEPRESSION
     Route: 048
  4. ENTUMIN [Suspect]
     Indication: DEPRESSION
     Route: 048
     Dates: start: 20130101, end: 20131217
  5. AKINETON [Concomitant]
     Indication: EXTRAPYRAMIDAL DISORDER
     Route: 048
     Dates: start: 20130101, end: 20131217
  6. AKINETON [Concomitant]
     Indication: EXTRAPYRAMIDAL DISORDER
     Route: 048
  7. XERISTAR [Concomitant]
     Indication: DEPRESSION
     Dates: start: 20130101, end: 20131217

REACTIONS (4)
  - Substance abuse [Unknown]
  - Confusional state [Unknown]
  - Akathisia [Unknown]
  - Off label use [Unknown]
